FAERS Safety Report 5672015-7 (Version None)
Quarter: 2008Q1

REPORT INFORMATION
  Report Type: 
  Country: None (occurrence: None)
  Receive Date: 20080317
  Receipt Date: 20080317
  Transmission Date: 20080703
  Serious: Yes (Death)
  Sender: FDA-Public Use
  Company Number: None

PATIENT
  Age: 38 Year
  Sex: Male
  Weight: 50 kg

DRUGS (3)
  1. LAMIVUDINE/STAVUDINE [Suspect]
     Indication: HIV INFECTION
     Dosage: 300MG/60MG ORAL
     Route: 048
     Dates: start: 20070320, end: 20080108
  2. EFAVIRENZ [Suspect]
     Indication: HIV INFECTION
     Dosage: 600MG ORAL
     Route: 048
     Dates: start: 20070320, end: 20080218
  3. LAMIVUDINE + ZIDOVUDINE [Suspect]
     Indication: HIV INFECTION
     Dosage: 300MG/600MG ORAL
     Route: 048
     Dates: start: 20080208, end: 20080218

REACTIONS (6)
  - ABDOMINAL PAIN [None]
  - DRUG HYPERSENSITIVITY [None]
  - DYSPEPSIA [None]
  - HYPERLACTACIDAEMIA [None]
  - NEUROPATHY PERIPHERAL [None]
  - VOMITING [None]
